FAERS Safety Report 5449406-2 (Version None)
Quarter: 2007Q3

REPORT INFORMATION
  Report Type: 
  Country: None (occurrence: None)
  Receive Date: 20070911
  Receipt Date: 20070910
  Transmission Date: 20080115
  Serious: Yes (Disabling)
  Sender: FDA-Public Use
  Company Number: AU-MERCK-0709AUS00070

PATIENT
  Age: 59 Year
  Sex: Male

DRUGS (1)
  1. ZETIA [Suspect]
     Route: 048
     Dates: start: 20061201, end: 20070115

REACTIONS (1)
  - MOOD ALTERED [None]
